FAERS Safety Report 4551032-4 (Version None)
Quarter: 2005Q1

REPORT INFORMATION
  Report Type: 
  Country: None (occurrence: None)
  Receive Date: 20050113
  Receipt Date: 20040510
  Transmission Date: 20050727
  Serious: No
  Sender: FDA-Public Use
  Company Number: US-BRISTOL-MYERS SQUIBB COMPANY-12583118

PATIENT
  Age: 53 Year
  Sex: Female

DRUGS (1)
  1. TRAZODONE HCL [Suspect]
     Indication: BIPOLAR DISORDER
     Route: 048
     Dates: start: 20040429, end: 20040430

REACTIONS (1)
  - RASH [None]
